FAERS Safety Report 8328582-8 (Version None)
Quarter: 2012Q2

REPORT INFORMATION
  Report Type: 
  Country: None (occurrence: None)
  Receive Date: 20120430
  Receipt Date: 20120413
  Transmission Date: 20120825
  Serious: Yes (Life-Threatening, Hospitalization)
  Sender: FDA-Public Use
  Company Number: 2012SGN00157

PATIENT
  Age: 45 Year
  Sex: Female

DRUGS (7)
  1. OXAZEPAM [Concomitant]
  2. LORAZEPAM [Concomitant]
  3. ULONE (CLOFEDANOL HYDROCHLORIDE) [Concomitant]
  4. ADVAIR HFA [Concomitant]
  5. ADCETRIS [Suspect]
     Indication: HODGKIN'S DISEASE REFRACTORY
     Dosage: 180 MG, INTRAVENOUS
     Route: 042
     Dates: start: 20120328, end: 20120328
  6. SENNOSIDE (SENNOSIDE A+B CALCIUM) [Concomitant]
  7. VENTOLIN (BECLOMETASONE DIPROPIONATE, SALBUTAMOL) [Concomitant]

REACTIONS (6)
  - SEPTIC SHOCK [None]
  - FEBRILE NEUTROPENIA [None]
  - HYPOMAGNESAEMIA [None]
  - HYPOPHOSPHATAEMIA [None]
  - HYPOKALAEMIA [None]
  - METABOLIC ACIDOSIS [None]
